FAERS Safety Report 19087313 (Version 3)
Quarter: 2021Q2

REPORT INFORMATION
  Report Type: Spontaneous
  Country: US (occurrence: US)
  Receive Date: 20210402
  Receipt Date: 20210603
  Transmission Date: 20210717
  Serious: Yes (Life-Threatening, Hospitalization, Other)
  Sender: FDA-Public Use
  Company Number: US-HORMOSAN PHARMA GMBH-2021-04119

PATIENT
  Sex: Male

DRUGS (1)
  1. QUETIAPINE FUMARATE. [Suspect]
     Active Substance: QUETIAPINE FUMARATE
     Indication: PRODUCT USED FOR UNKNOWN INDICATION
     Dosage: UNK
     Route: 065

REACTIONS (8)
  - Withdrawal syndrome [Unknown]
  - Suicidal ideation [Unknown]
  - Libido increased [Unknown]
  - Hallucination, auditory [Unknown]
  - Suicide attempt [Unknown]
  - Malaise [Unknown]
  - Agitation [Unknown]
  - Pyromania [Unknown]
